FAERS Safety Report 16622281 (Version 1)
Quarter: 2019Q3

REPORT INFORMATION
  Report Type: Spontaneous
  Country: US (occurrence: US)
  Receive Date: 20190723
  Receipt Date: 20190723
  Transmission Date: 20191004
  Serious: Yes (Other)
  Sender: FDA-Public Use
  Company Number: US-OTSUKA-2018_032784

PATIENT
  Age: 50 Year
  Sex: Male
  Weight: 70.75 kg

DRUGS (7)
  1. REXULTI [Suspect]
     Active Substance: BREXPIPRAZOLE
     Dosage: 4 MG, UNK
     Route: 065
     Dates: start: 20180906
  2. REXULTI [Suspect]
     Active Substance: BREXPIPRAZOLE
     Dosage: 3 MG, UNK
     Route: 065
     Dates: start: 20180821
  3. REXULTI [Suspect]
     Active Substance: BREXPIPRAZOLE
     Dosage: 4 MG, QD
     Route: 065
  4. REXULTI [Suspect]
     Active Substance: BREXPIPRAZOLE
     Indication: ADJUVANT THERAPY
     Dosage: 9 MG, UNK (3 TABS)
     Route: 065
     Dates: start: 20180920, end: 20181011
  5. REXULTI [Suspect]
     Active Substance: BREXPIPRAZOLE
     Indication: MAJOR DEPRESSION
     Dosage: 1 MG, QD
     Route: 065
     Dates: start: 20180724
  6. REXULTI [Suspect]
     Active Substance: BREXPIPRAZOLE
     Dosage: 2 MG, UNK
     Route: 065
     Dates: start: 20180807
  7. REXULTI [Suspect]
     Active Substance: BREXPIPRAZOLE
     Dosage: 6 MG, UNK (TAPERED DOWN)
     Route: 065
     Dates: start: 2018

REACTIONS (2)
  - Accidental overdose [Unknown]
  - Prescribed overdose [Unknown]

NARRATIVE: CASE EVENT DATE: 20180906
